FAERS Safety Report 8529918-5 (Version None)
Quarter: 2012Q2

REPORT INFORMATION
  Report Type: 
  Country: None (occurrence: None)
  Receive Date: 20120410
  Receipt Date: 20110517
  Transmission Date: 20120825
  Serious: Yes (Other)
  Sender: FDA-Public Use
  Company Number: AUR-APL-2011-00159

PATIENT
  Age: 66 Year
  Sex: Female
  Weight: 88.4 kg

DRUGS (10)
  1. EFFEXOR [Suspect]
     Indication: PRODUCT USED FOR UNKNOWN INDICATION
     Dosage: ORAL
     Dates: start: 20090101
  2. LISINOPRIL [Suspect]
     Indication: BLOOD PRESSURE
  3. PREDNISONE [Suspect]
     Indication: ASTHMA
     Dosage: 2 ROUNDS
  4. DARVOCET [Concomitant]
  5. HYDROCHLOROTHIAZIDE (IYDROCHLOROTHIAZIDE) [Concomitant]
  6. LYRICA [Suspect]
     Indication: PAIN
     Dosage: (1 IN 1 D), ORAL 300 MG (150 MG,24.N 1 D),ORAL
     Route: 048
     Dates: start: 20090801
  7. LYRICA [Suspect]
     Indication: FIBROMYALGIA
     Dosage: (1 IN 1 D), ORAL 300 MG (150 MG,24.N 1 D),ORAL
     Route: 048
     Dates: start: 20090801
  8. LYRICA [Suspect]
     Indication: PAIN
     Dosage: (1 IN 1 D), ORAL 300 MG (150 MG,24.N 1 D),ORAL
     Route: 048
     Dates: start: 20090801
  9. LYRICA [Suspect]
     Indication: FIBROMYALGIA
     Dosage: (1 IN 1 D), ORAL 300 MG (150 MG,24.N 1 D),ORAL
     Route: 048
     Dates: start: 20090801
  10. HYDRODIURIL(HYDROCHLQROTHIAZIDE [Concomitant]

REACTIONS (1)
  - PNEUMONIA [None]
